FAERS Safety Report 19949741 (Version 1)
Quarter: 2021Q4

REPORT INFORMATION
  Report Type: Spontaneous
  Country: FR (occurrence: FR)
  Receive Date: 20211013
  Receipt Date: 20211013
  Transmission Date: 20220303
  Serious: Yes (Other)
  Sender: FDA-Public Use
  Company Number: FR-GSKCCFEMEA-CASE-01323785_AE-50332

PATIENT
  Age: 56 Year
  Sex: Female

DRUGS (2)
  1. NUCALA [Suspect]
     Active Substance: MEPOLIZUMAB
     Indication: Asthma
     Dosage: UNK
     Dates: start: 202106
  2. SYMBICORT [Suspect]
     Active Substance: BUDESONIDE\FORMOTEROL FUMARATE DIHYDRATE
     Indication: Product used for unknown indication
     Dosage: UNK

REACTIONS (9)
  - Angle closure glaucoma [Unknown]
  - Corneal thickening [Unknown]
  - Fatigue [Unknown]
  - Hypersensitivity [Unknown]
  - Arthralgia [Unknown]
  - Headache [Unknown]
  - Intraocular pressure increased [Unknown]
  - Injection site discomfort [Unknown]
  - Carpal tunnel syndrome [Unknown]
